FAERS Safety Report 9266111 (Version 10)
Quarter: 2014Q4

REPORT INFORMATION
  Report Type: Report from Study
  Country: MX (occurrence: MX)
  Receive Date: 20130502
  Receipt Date: 20141226
  Transmission Date: 20150529
  Serious: Yes (Death, Life-Threatening, Hospitalization, Disabling)
  Sender: FDA-Public Use
  Company Number: MX-AMGEN-MEXCT2013030381

PATIENT
  Age: 61 Year
  Sex: Female
  Weight: 95 kg

DRUGS (26)
  1. ETANERCEPT [Suspect]
     Active Substance: ETANERCEPT
     Indication: RHEUMATOID ARTHRITIS
     Dosage: LAST DOSE PRIOR TO SAE 19/MAR/2013, 50MG (1 IN 1 WK)
     Route: 058
     Dates: start: 20121127
  2. OMEPRAZOLE. [Concomitant]
     Active Substance: OMEPRAZOLE
     Dosage: 20 MG, DAILY
     Route: 048
     Dates: start: 2010
  3. FOLIC ACID. [Concomitant]
     Active Substance: FOLIC ACID
     Indication: RHEUMATOID ARTHRITIS
     Dosage: 5 MG, DAILY
     Route: 048
     Dates: start: 2005
  4. KETOROLAC [Concomitant]
     Active Substance: KETOROLAC\KETOROLAC TROMETHAMINE
     Dosage: 10 MG, SINGLE
     Route: 042
     Dates: start: 20121226, end: 20121226
  5. FUROSEMIDE. [Concomitant]
     Active Substance: FUROSEMIDE
     Indication: PERIPHERAL VASCULAR DISORDER
     Dosage: UNK, DAILY
     Route: 048
     Dates: start: 20121127, end: 20130328
  6. PARACETAMOL [Concomitant]
     Active Substance: ACETAMINOPHEN
     Dosage: 1 G, SINGLE
     Route: 048
     Dates: start: 20130117, end: 20130117
  7. CLOXACILLIN                        /00012002/ [Concomitant]
     Indication: SOFT TISSUE INFECTION
     Dosage: 100 MG, 3X/DAY
     Route: 048
     Dates: start: 20130205, end: 20130319
  8. LEVOFLOXACIN. [Concomitant]
     Active Substance: LEVOFLOXACIN
     Indication: SOFT TISSUE INFECTION
     Dosage: 750 MG, UNK
     Route: 048
     Dates: start: 20130123
  9. DIAZEPAM. [Concomitant]
     Active Substance: DIAZEPAM
     Indication: INSOMNIA
     Dosage: 5 MG, 1X/DAY (1 IN 1 D)
     Route: 048
     Dates: start: 2005
  10. CLOXACILLIN [Concomitant]
     Active Substance: CLOXACILLIN
     Indication: SOFT TISSUE INFECTION
     Dosage: 100 MG, 3X/DAY (3 IN 1 D)
     Route: 048
     Dates: start: 20130205, end: 20130319
  11. FUROSEMIDE. [Concomitant]
     Active Substance: FUROSEMIDE
     Dosage: 20 MG, 1X/DAY (1 IN 1 D)
     Route: 048
     Dates: start: 201209, end: 20121106
  12. DICLOFENAC [Concomitant]
     Active Substance: DICLOFENAC
     Indication: RHEUMATOID ARTHRITIS
     Dosage: 100 MG, 1X/DAY (1 IN 1 D)
     Route: 048
     Dates: start: 1992, end: 20130131
  13. FOLIC ACID. [Concomitant]
     Active Substance: FOLIC ACID
     Dosage: 5 MG, 1X/DAY (1 IN 1 D)
     Route: 048
     Dates: start: 2005, end: 20130326
  14. KETOROLAC [Concomitant]
     Active Substance: KETOROLAC\KETOROLAC TROMETHAMINE
     Dosage: 10 MG, 1 AS REQUIRED
     Route: 030
     Dates: start: 20130117
  15. DIOSMINA                           /00426001/ [Concomitant]
     Indication: PERIPHERAL VASCULAR DISORDER
     Dosage: 600 MG, 1X/DAY (1 IN 1 D)
     Route: 048
     Dates: start: 201209, end: 20130326
  16. DIOSMINA                           /00426001/ [Concomitant]
     Indication: PERIPHERAL VASCULAR DISORDER
     Dosage: 600MG, DAILY
     Route: 048
     Dates: start: 201209
  17. PARACETAMOL [Concomitant]
     Active Substance: ACETAMINOPHEN
     Indication: RHEUMATOID ARTHRITIS
     Dosage: 500 MG, 1 AS REQUIRED
     Route: 048
     Dates: start: 1992, end: 20130326
  18. PREDNISOLONE. [Concomitant]
     Active Substance: PREDNISOLONE
     Indication: RHEUMATOID ARTHRITIS
     Dosage: 5 MG, DAILY
     Route: 048
     Dates: start: 1992, end: 20130326
  19. CIPROFLOXACIN. [Concomitant]
     Active Substance: CIPROFLOXACIN
     Indication: SOFT TISSUE INFECTION
     Dosage: 500 MG, 2X/DAY (2 IN 1 D)
     Route: 048
     Dates: start: 20130218, end: 20130319
  20. ETANERCEPT [Suspect]
     Active Substance: ETANERCEPT
     Dosage: LAST DOSE PRIOR TO SAE 19/MAR/2013, 50MG (1 IN 1 WK)
     Route: 058
  21. ETANERCEPT [Suspect]
     Active Substance: ETANERCEPT
     Dosage: LAST DOSE PRIOR TO SAE 19/MAR/2013, 50MG (1 IN 1 WK)
     Route: 058
  22. METHOTREXATE [Concomitant]
     Active Substance: METHOTREXATE
     Indication: RHEUMATOID ARTHRITIS
     Dosage: 10 MG, WEEKLY
     Route: 048
     Dates: start: 2005
  23. METHOTREXATE [Concomitant]
     Active Substance: METHOTREXATE
     Dosage: 10 MG, WEEKLY (1 IN 1 WK)
     Route: 048
     Dates: start: 2005, end: 20130326
  24. FUROSEMIDE. [Concomitant]
     Active Substance: FUROSEMIDE
     Indication: INSOMNIA
     Dosage: 20 MG, DAILY
     Route: 048
     Dates: start: 2008, end: 20121106
  25. OMEPRAZOLE. [Concomitant]
     Active Substance: OMEPRAZOLE
     Dosage: 20 MG, 1X/DAY (1 IN I D)
     Route: 048
     Dates: start: 2010, end: 20130326
  26. DICLOFENAC [Concomitant]
     Active Substance: DICLOFENAC
     Dosage: 100 MG, SINGLE
     Route: 048
     Dates: start: 20130131, end: 20130326

REACTIONS (2)
  - Cerebrovascular accident [Fatal]
  - Pneumonia [Unknown]

NARRATIVE: CASE EVENT DATE: 20130328
